FAERS Safety Report 6979279-8 (Version None)
Quarter: 2010Q3

REPORT INFORMATION
  Report Type: 
  Country: None (occurrence: None)
  Receive Date: 20100913
  Receipt Date: 20100831
  Transmission Date: 20110219
  Serious: Yes (Hospitalization)
  Sender: FDA-Public Use
  Company Number: FR-MYLANLABS-2010S1015734

PATIENT
  Age: 55 Year
  Sex: Female
  Weight: 74.5 kg

DRUGS (1)
  1. TAMOXIFENE [Suspect]
     Indication: BREAST CANCER
     Route: 048
     Dates: start: 20100301, end: 20100826

REACTIONS (1)
  - COLITIS ISCHAEMIC [None]
